FAERS Safety Report 15347132 (Version 1)
Quarter: 2018Q3

REPORT INFORMATION
  Report Type: Spontaneous
  Country: US (occurrence: US)
  Receive Date: 20180904
  Receipt Date: 20180904
  Transmission Date: 20181010
  Serious: No
  Sender: FDA-Public Use
  Company Number: US-BAYER-2018-163579

PATIENT
  Age: 71 Year
  Sex: Female
  Weight: 77 kg

DRUGS (2)
  1. MIRALAX [Suspect]
     Active Substance: POLYETHYLENE GLYCOL 3350
     Indication: CONSTIPATION PROPHYLAXIS
     Dosage: 2 TABLESPOON
     Route: 048
     Dates: start: 2017
  2. MIRALAX [Suspect]
     Active Substance: POLYETHYLENE GLYCOL 3350
     Indication: CONSTIPATION
     Dosage: 1.5 TABLESPOON
     Route: 048

REACTIONS (3)
  - Product prescribing issue [Unknown]
  - Diarrhoea [Recovered/Resolved]
  - Incorrect dose administered [Unknown]

NARRATIVE: CASE EVENT DATE: 2017
